FAERS Safety Report 14345897 (Version 2)
Quarter: 2018Q1

REPORT INFORMATION
  Report Type: Spontaneous
  Country: JP (occurrence: JP)
  Receive Date: 20180103
  Receipt Date: 20180118
  Transmission Date: 20180509
  Serious: Yes (Hospitalization)
  Sender: FDA-Public Use
  Company Number: JP-VIFOR (INTERNATIONAL) INC.-VIT-2017-12547

PATIENT
  Age: 74 Year
  Sex: Female

DRUGS (18)
  1. MIRCERA [Suspect]
     Active Substance: METHOXY POLYETHYLENE GLYCOL-EPOETIN BETA
     Route: 042
     Dates: start: 20171007
  2. CONIEL [Concomitant]
     Active Substance: BENIDIPINE HYDROCHLORIDE
     Route: 065
  3. MIRCERA [Suspect]
     Active Substance: METHOXY POLYETHYLENE GLYCOL-EPOETIN BETA
     Indication: NEPHROGENIC ANAEMIA
     Route: 042
     Dates: start: 20170404
  4. MIRCERA [Suspect]
     Active Substance: METHOXY POLYETHYLENE GLYCOL-EPOETIN BETA
     Route: 042
     Dates: start: 20170515
  5. MIRCERA [Suspect]
     Active Substance: METHOXY POLYETHYLENE GLYCOL-EPOETIN BETA
     Route: 042
     Dates: start: 20170417, end: 20170417
  6. SUNRYTHM [Concomitant]
     Active Substance: PILSICAINIDE HYDROCHLORIDE
     Route: 065
  7. TAKECAB [Concomitant]
     Active Substance: VONOPRAZAN FUMURATE
     Route: 065
  8. TRAZENTA [Concomitant]
     Active Substance: LINAGLIPTIN
     Route: 065
  9. MIRCERA [Suspect]
     Active Substance: METHOXY POLYETHYLENE GLYCOL-EPOETIN BETA
     Route: 042
     Dates: start: 20170710
  10. MIRCERA [Suspect]
     Active Substance: METHOXY POLYETHYLENE GLYCOL-EPOETIN BETA
     Route: 042
     Dates: start: 20170904
  11. SENNOSIDE A+B [Concomitant]
     Active Substance: SENNOSIDES A AND B
     Route: 065
  12. PROMAC [Concomitant]
     Active Substance: NITROFURANTOIN
     Route: 065
  13. MEVALOTIN [Concomitant]
     Active Substance: PRAVASTATIN SODIUM
     Route: 065
  14. MIRCERA [Suspect]
     Active Substance: METHOXY POLYETHYLENE GLYCOL-EPOETIN BETA
     Route: 042
     Dates: start: 20170807
  15. BAYASPIRIN [Concomitant]
     Active Substance: ASPIRIN
     Route: 065
  16. AMITIZA [Concomitant]
     Active Substance: LUBIPROSTONE
     Route: 065
  17. DAIKENCHUTO [Concomitant]
     Active Substance: HERBALS
     Route: 065
  18. MIYA-BM [Concomitant]
     Active Substance: CLOSTRIDIUM BUTYRICUM SPORES STRAIN M-55

REACTIONS (14)
  - Aplasia pure red cell [Not Recovered/Not Resolved]
  - Metabolic acidosis [Unknown]
  - Generalised oedema [Unknown]
  - Haemoglobin decreased [Unknown]
  - Hyperchloraemia [Not Recovered/Not Resolved]
  - Polyuria [Unknown]
  - Fluid overload [Unknown]
  - Malaise [Unknown]
  - Hypertension [Unknown]
  - Cardiac murmur [Unknown]
  - Cardiomegaly [Unknown]
  - Blood zinc decreased [Unknown]
  - Anaemia [Unknown]
  - Abdominal distension [Unknown]

NARRATIVE: CASE EVENT DATE: 2017
